APPROVED DRUG PRODUCT: COLESTIPOL HYDROCHLORIDE
Active Ingredient: COLESTIPOL HYDROCHLORIDE
Strength: 1GM
Dosage Form/Route: TABLET;ORAL
Application: A217667 | Product #001 | TE Code: AB
Applicant: EDENBRIDGE PHARMACEUTICALS LLC
Approved: Aug 16, 2024 | RLD: No | RS: No | Type: RX